FAERS Safety Report 21280336 (Version 3)
Quarter: 2022Q4

REPORT INFORMATION
  Report Type: Spontaneous
  Country: US (occurrence: US)
  Receive Date: 20220901
  Receipt Date: 20221122
  Transmission Date: 20230112
  Serious: No
  Sender: FDA-Public Use
  Company Number: US-PFIZER INC-PV202200033710

PATIENT
  Age: 57 Year
  Sex: Female

DRUGS (3)
  1. XELJANZ [Suspect]
     Active Substance: TOFACITINIB CITRATE
     Indication: Rheumatoid arthritis
     Dosage: UNK
  2. XELJANZ [Suspect]
     Active Substance: TOFACITINIB CITRATE
     Dosage: 5 MG, 2X/DAY
     Route: 048
     Dates: start: 20200601
  3. HYDROXYCHLOROQUINE SULFATE [Concomitant]
     Active Substance: HYDROXYCHLOROQUINE SULFATE
     Dosage: UNK

REACTIONS (9)
  - Malaise [Unknown]
  - Pain [Unknown]
  - Condition aggravated [Unknown]
  - Pain in extremity [Unknown]
  - Irritability [Unknown]
  - Peripheral swelling [Unknown]
  - Memory impairment [Unknown]
  - Product dose omission in error [Unknown]
  - Intentional dose omission [Unknown]
